FAERS Safety Report 26165478 (Version 1)
Quarter: 2025Q4

REPORT INFORMATION
  Report Type: Other
  Country: US (occurrence: US)
  Receive Date: 20251216
  Receipt Date: 20251216
  Transmission Date: 20260118
  Serious: Yes (Hospitalization)
  Sender: TRAVERE THERAPEUTICS
  Company Number: US-TRAVERE-2025TVT02380

PATIENT
  Sex: Male

DRUGS (1)
  1. FILSPARI [Suspect]
     Active Substance: SPARSENTAN
     Indication: Focal segmental glomerulosclerosis
     Route: 048

REACTIONS (3)
  - Nasopharyngitis [Recovering/Resolving]
  - Fluid retention [Recovering/Resolving]
  - Product use in unapproved indication [Unknown]
